FAERS Safety Report 19326824 (Version 1)
Quarter: 2021Q2

REPORT INFORMATION
  Report Type: Spontaneous
  Country: US (occurrence: US)
  Receive Date: 20210528
  Receipt Date: 20210528
  Transmission Date: 20210717
  Serious: No
  Sender: FDA-Public Use
  Company Number: US-LUPIN PHARMACEUTICALS INC.-2021-08016

PATIENT
  Age: 33 Year
  Sex: Female

DRUGS (8)
  1. LAMOTRIGINE. [Suspect]
     Active Substance: LAMOTRIGINE
     Indication: PARTIAL SEIZURES
     Dosage: UNK UNK, BID, 500MG AM AND 400MG PM
     Route: 065
  2. SERTRALINE [Suspect]
     Active Substance: SERTRALINE HYDROCHLORIDE
     Indication: DEPRESSION
     Dosage: 25 MILLIGRAM, QD
     Route: 065
  3. MULTIVITAMIN [Suspect]
     Active Substance: VITAMINS
     Indication: VITAMIN SUPPLEMENTATION
     Dosage: UNK PRENATAL
     Route: 065
  4. L?METHYLFOLATE [Suspect]
     Active Substance: LEVOMEFOLIC ACID
     Indication: VITAMIN SUPPLEMENTATION
     Dosage: 15 MILLIGRAM, QD
     Route: 065
  5. LAMOTRIGINE. [Suspect]
     Active Substance: LAMOTRIGINE
     Indication: FOCAL DYSCOGNITIVE SEIZURES
  6. QUETIAPINE FUMARATE. [Suspect]
     Active Substance: QUETIAPINE FUMARATE
     Indication: BIPOLAR I DISORDER
     Dosage: 400 MILLIGRAM, QD
     Route: 065
  7. ERGOCALCIFEROLUM [Suspect]
     Active Substance: ERGOCALCIFEROL
     Indication: VITAMIN SUPPLEMENTATION
     Dosage: UNK VITAMIN D
     Route: 065
  8. METHYLCOBALAMINE [Suspect]
     Active Substance: METHYLCOBALAMIN
     Indication: VITAMIN SUPPLEMENTATION
     Dosage: 100 MICROGRAM
     Route: 065

REACTIONS (2)
  - Normal newborn [Unknown]
  - Maternal exposure during pregnancy [Unknown]
